FAERS Safety Report 4359665-5 (Version None)
Quarter: 2004Q2

REPORT INFORMATION
  Report Type: 
  Country: None (occurrence: None)
  Receive Date: 20040513
  Receipt Date: 20040429
  Transmission Date: 20050107
  Serious: Yes (Hospitalization)
  Sender: FDA-Public Use
  Company Number: 206378

PATIENT
  Age: 65 Year
  Sex: Female

DRUGS (9)
  1. HERCEPTIN(TRASTUZUMAB) PWDR + SOLVENT, INFUSION SOLN, 440MG [Suspect]
     Indication: BREAST CANCER METASTATIC
     Dates: start: 20030201, end: 20030401
  2. HERCEPTIN(TRASTUZUMAB) PWDR + SOLVENT, INFUSION SOLN, 440MG [Suspect]
     Indication: BREAST CANCER METASTATIC
     Dates: start: 20030401, end: 20040101
  3. RADIOTHERAPY (RADIATION THERAPY) [Concomitant]
  4. TAMOXIFEN CITRATE [Concomitant]
  5. FLUOROURACIL [Concomitant]
  6. DOXORUBICIN (DOXORUBICI HYDROCHLORIDE, DOXORUBICIN) [Concomitant]
  7. CYCLOPHOSPHAMIDE [Concomitant]
  8. PACLITAXEL [Concomitant]
  9. CARBOPLATIN (CARBOPLTIN) [Concomitant]

REACTIONS (2)
  - LEFT VENTRICULAR FAILURE [None]
  - PULMONARY EMBOLISM [None]
